FAERS Safety Report 4576176-2 (Version None)
Quarter: 2005Q1

REPORT INFORMATION
  Report Type: 
  Country: None (occurrence: None)
  Receive Date: 20050201
  Receipt Date: 20050201
  Transmission Date: 20050727
  Serious: Yes (Death, Hospitalization)
  Sender: FDA-Public Use
  Company Number: None

PATIENT
  Age: 58 Year
  Sex: Male
  Weight: 83.9154 kg

DRUGS (15)
  1. VINCRISTINE [Suspect]
     Indication: LYMPHOMA
     Dosage: 2.0 MG (CAP 2.5 MG) IV BOLUS ON DAY 1
     Route: 042
  2. ETOPOSIDE [Suspect]
     Dosage: 116 MG PER DAY IV FOR 5 DAYS
     Route: 042
  3. CYTARABINE [Suspect]
     Dosage: 3880 MG IV OVER 3 HRS DAILY FOR 4 DAYS
     Route: 042
  4. MESNA [Suspect]
     Dosage: 727 MG BOLUS BEFORE IFOSFAMIDE DAILY FOR 5 DAYS
  5. IFOSFAMIDE [Suspect]
     Dosage: 2910 MG IV DAILY FOR 5 DAYS
     Route: 042
  6. LASIX [Suspect]
     Dosage: 40 MG IV/PO IF FLUID INPUT IS MORE THAN OUTPUT BY AT-LEAST 500MLS
  7. THROMBIN [Concomitant]
  8. EFFEXOR [Concomitant]
  9. ATENOLOL [Concomitant]
  10. VICODIN [Concomitant]
  11. PERCOCET [Concomitant]
  12. ATIVAN [Concomitant]
  13. LEVAQUIN [Concomitant]
  14. VALTREX [Concomitant]
  15. DIFLUCAN [Concomitant]

REACTIONS (10)
  - BLOOD PRESSURE DECREASED [None]
  - CHEST PAIN [None]
  - COUGH [None]
  - DYSPNOEA [None]
  - FEELING ABNORMAL [None]
  - HAEMOPTYSIS [None]
  - OXYGEN SATURATION DECREASED [None]
  - PANCYTOPENIA [None]
  - SEPSIS [None]
  - SPUTUM DISCOLOURED [None]
